FAERS Safety Report 14081297 (Version 6)
Quarter: 2018Q1

REPORT INFORMATION
  Report Type: Spontaneous
  Country: GB (occurrence: GB)
  Receive Date: 20171012
  Receipt Date: 20180323
  Transmission Date: 20180508
  Serious: Yes (Other)
  Sender: FDA-Public Use
  Company Number: GB-ABBVIE-17P-167-2129867-00

PATIENT
  Age: 80 Year
  Sex: Female

DRUGS (2)
  1. EPILIM [Suspect]
     Active Substance: VALPROATE SODIUM
     Indication: SEIZURE
     Dosage: EXTENDED RELEASE
     Route: 048
  2. EPILIM [Suspect]
     Active Substance: VALPROATE SODIUM
     Route: 048

REACTIONS (4)
  - Product quality issue [Unknown]
  - Seizure [Unknown]
  - Eye haemorrhage [Unknown]
  - Ocular hyperaemia [Unknown]
